FAERS Safety Report 8807378 (Version 1)
Quarter: 2012Q4

REPORT INFORMATION
  Report Type: 
  Country: SV (occurrence: SV)
  Receive Date: 20120925
  Receipt Date: 20120925
  Transmission Date: 20130627
  Serious: Yes (Death, Other)
  Sender: FDA-Public Use
  Company Number: PHHO2004SV11185

PATIENT
  Sex: Male
  Weight: 58 kg

DRUGS (3)
  1. GLIVEC [Suspect]
     Indication: CHRONIC MYELOID LEUKAEMIA
     Dosage: 600 mg, QD
     Route: 048
     Dates: start: 20040105
  2. GLIVEC [Suspect]
     Dosage: 400 mg, BID
     Route: 048
  3. GLIVEC [Suspect]
     Dates: start: 20040227

REACTIONS (12)
  - Sepsis [Fatal]
  - Chronic myeloid leukaemia [Fatal]
  - Malignant neoplasm progression [Fatal]
  - General physical health deterioration [Unknown]
  - Blast crisis in myelogenous leukaemia [Unknown]
  - Thrombocytopenia [Unknown]
  - White blood cell count increased [Unknown]
  - Bronchopneumonia [Unknown]
  - Infection [Unknown]
  - Haemorrhage [Unknown]
  - Pyrexia [Unknown]
  - Therapeutic response decreased [Unknown]
